FAERS Safety Report 18242192 (Version 1)
Quarter: 2020Q3

REPORT INFORMATION
  Report Type: Spontaneous
  Country: AR (occurrence: AR)
  Receive Date: 20200908
  Receipt Date: 20200908
  Transmission Date: 20201103
  Serious: Yes (Death)
  Sender: FDA-Public Use
  Company Number: AR-PFIZER INC-2020346040

PATIENT
  Age: 76 Year
  Sex: Female

DRUGS (2)
  1. IBRANCE [Suspect]
     Active Substance: PALBOCICLIB
     Dosage: 125 MG, CYCLIC
     Dates: start: 201708, end: 202007
  2. FULVESTRANT. [Suspect]
     Active Substance: FULVESTRANT

REACTIONS (2)
  - Neoplasm progression [Unknown]
  - Death [Fatal]

NARRATIVE: CASE EVENT DATE: 202007
